FAERS Safety Report 4956295-9 (Version None)
Quarter: 2006Q1

REPORT INFORMATION
  Report Type: 
  Country: None (occurrence: None)
  Receive Date: 20060323
  Receipt Date: 20060310
  Transmission Date: 20060701
  Serious: Yes (Hospitalization)
  Sender: FDA-Public Use
  Company Number: 2006037045

PATIENT
  Age: 63 Year
  Sex: Female

DRUGS (10)
  1. VORICONAZOLE (VORICONAZOLE) [Suspect]
     Indication: B-CELL LYMPHOMA
     Dosage: 400 MG, EVERY DAY, ORAL
     Route: 048
     Dates: start: 20050823, end: 20050910
  2. CYTARABINE [Suspect]
     Indication: B-CELL LYMPHOMA
     Dosage: 1732 MG, EVERY DAY, INTRAVENOUS
     Route: 042
     Dates: start: 20050823, end: 20050827
  3. ETOPOSIDE [Suspect]
     Indication: B-CELL LYMPHOMA
     Dosage: 330 MG, EVERY DAY, INTRAVENOUS
     Route: 042
     Dates: start: 20050824, end: 20050827
  4. ARANESP [Suspect]
     Indication: B-CELL LYMPHOMA
     Dosage: 500 MCG, EVERY 3 WEEKS, SUBCUTANEOUS
     Route: 058
     Dates: start: 20050628, end: 20050828
  5. DOXORUBICIN HCL [Concomitant]
  6. METHOTREXATE [Concomitant]
  7. VINCRISTINE SULFATE [Concomitant]
  8. CYCLOPHOSPHAMIDE [Concomitant]
  9. RITUXIMAB [Concomitant]
  10. PREDNISONE [Concomitant]

REACTIONS (1)
  - DEEP VEIN THROMBOSIS [None]
